FAERS Safety Report 4509038-7 (Version None)
Quarter: 2004Q4

REPORT INFORMATION
  Report Type: 
  Country: None (occurrence: None)
  Receive Date: 20041122
  Receipt Date: 20041122
  Transmission Date: 20050328
  Serious: Yes (Hospitalization)
  Sender: FDA-Public Use
  Company Number: None

PATIENT
  Sex: Male
  Weight: 83.6 kg

DRUGS (7)
  1. ZOSYN [Suspect]
     Indication: OSTEOMYELITIS
     Dosage: 3.375 GM Q 8 H IV
     Route: 042
     Dates: start: 20041008
  2. STARLIX [Concomitant]
  3. MEFORMIN [Concomitant]
  4. ACTOS [Concomitant]
  5. LANTUS [Concomitant]
  6. NOVOLOG [Concomitant]
  7. ALIUS [Concomitant]

REACTIONS (1)
  - NEUTROPENIA [None]
